FAERS Safety Report 13366542 (Version 2)
Quarter: 2017Q2

REPORT INFORMATION
  Report Type: Other
  Country: SI (occurrence: SI)
  Receive Date: 20170323
  Receipt Date: 20170404
  Transmission Date: 20170830
  Serious: Yes (Hospitalization, Other)
  Sender: FDA-Public Use
  Company Number: SI-TAKEDA-2017MPI002474

PATIENT
  Age: 72 Year
  Sex: Female

DRUGS (15)
  1. CALCIUM CARBONATE. [Concomitant]
     Active Substance: CALCIUM CARBONATE
     Dosage: 1 G, BID
     Route: 065
  2. IXAZOMIB [Suspect]
     Active Substance: IXAZOMIB
     Indication: PLASMA CELL MYELOMA
     Dosage: 4 MG, 1/WEEK
     Route: 048
     Dates: start: 20170220, end: 20170227
  3. DEXAMETHASONE. [Suspect]
     Active Substance: DEXAMETHASONE
     Indication: PLASMA CELL MYELOMA
     Dosage: 40 MG, QD
     Route: 048
     Dates: start: 20170216, end: 20170305
  4. LYRICA [Concomitant]
     Active Substance: PREGABALIN
     Dosage: 50 MG, BID
     Route: 065
  5. NEPHROTRANS [Concomitant]
     Active Substance: SODIUM BICARBONATE
     Dosage: UNK, QD
     Route: 065
  6. LENALIDOMIDE [Concomitant]
     Active Substance: LENALIDOMIDE
     Indication: PLASMA CELL MYELOMA
     Dosage: 5 MG, QD
     Route: 048
     Dates: start: 20170216, end: 20170308
  7. KYTRIL [Concomitant]
     Active Substance: GRANISETRON HYDROCHLORIDE
     Dosage: UNK
     Route: 065
  8. ASPIRIN                            /00002701/ [Concomitant]
     Active Substance: ASPIRIN
     Dosage: 100 MG, QD
     Route: 065
  9. FLURAZEPAM [Concomitant]
     Active Substance: FLURAZEPAM\FLURAZEPAM HYDROCHLORIDE
     Dosage: 15 MG, QD
     Route: 065
  10. ALPHA D3 [Concomitant]
     Dosage: 0.25 ?G, QD
     Route: 065
  11. ZOLEDRONIC ACID [Concomitant]
     Active Substance: ZOLEDRONIC ACID
     Dosage: 500 ML, QD
     Route: 065
     Dates: start: 20170220, end: 20170220
  12. VALTREX [Concomitant]
     Active Substance: VALACYCLOVIR HYDROCHLORIDE
     Dosage: UNK, QD
     Route: 048
  13. ULTOP                              /00661201/ [Concomitant]
     Dosage: 20 MG, QD
     Route: 065
  14. DORETA [Concomitant]
     Active Substance: ACETAMINOPHEN\TRAMADOL HYDROCHLORIDE
     Dosage: 37.5 MG, TID
     Route: 065
  15. ADALAT [Concomitant]
     Active Substance: NIFEDIPINE
     Dosage: 30 MG, BID
     Route: 065

REACTIONS (8)
  - Chills [Recovered/Resolved]
  - Renal failure [Recovered/Resolved]
  - C-reactive protein increased [Recovered/Resolved]
  - Cytokine release syndrome [Recovered/Resolved]
  - Malaise [Recovered/Resolved]
  - Oedema peripheral [Recovered/Resolved]
  - Nausea [Recovered/Resolved]
  - Pyrexia [Recovered/Resolved]

NARRATIVE: CASE EVENT DATE: 20170220
